FAERS Safety Report 7396271-2 (Version None)
Quarter: 2011Q2

REPORT INFORMATION
  Report Type: 
  Country: None (occurrence: None)
  Receive Date: 20110406
  Receipt Date: 20110328
  Transmission Date: 20111010
  Serious: Yes (Death, Hospitalization)
  Sender: FDA-Public Use
  Company Number: FR-SANOFI-AVENTIS-200913395FR

PATIENT
  Age: 24 Year
  Sex: Male

DRUGS (4)
  1. CARBAMAZEPINE [Suspect]
     Route: 065
  2. CLOBAZAM [Suspect]
     Route: 065
  3. CYAMEMAZINE [Suspect]
     Dosage: DOSE UNIT: 40 MG/ML
     Route: 048
     Dates: end: 20070101
  4. ZOLPIDEM [Suspect]
     Route: 065

REACTIONS (10)
  - INTESTINAL OBSTRUCTION [None]
  - ILEUS [None]
  - ISCHAEMIA [None]
  - OXYGEN SATURATION DECREASED [None]
  - CARDIAC ARREST [None]
  - ABDOMINAL DISTENSION [None]
  - INTESTINAL DILATATION [None]
  - ABDOMINAL COMPARTMENT SYNDROME [None]
  - COLONIC PSEUDO-OBSTRUCTION [None]
  - HYPOTENSION [None]
